FAERS Safety Report 5178073-0 (Version None)
Quarter: 2006Q4

REPORT INFORMATION
  Report Type: 
  Country: None (occurrence: None)
  Receive Date: 20061218
  Receipt Date: 20060728
  Transmission Date: 20070319
  Serious: No
  Sender: FDA-Public Use
  Company Number: US-AMGEN-KDL188243

PATIENT
  Sex: Female

DRUGS (1)
  1. ENBREL [Suspect]
     Indication: ANKYLOSING SPONDYLITIS
     Route: 058
     Dates: start: 20060714

REACTIONS (6)
  - FEELING HOT [None]
  - FEELING JITTERY [None]
  - INJECTION SITE PAIN [None]
  - INJECTION SITE REACTION [None]
  - MUSCULOSKELETAL PAIN [None]
  - PARAESTHESIA [None]
